FAERS Safety Report 5346154-4 (Version None)
Quarter: 2007Q2

REPORT INFORMATION
  Report Type: 
  Country: None (occurrence: None)
  Receive Date: 20070605
  Receipt Date: 20070523
  Transmission Date: 20071010
  Serious: Yes (Hospitalization)
  Sender: FDA-Public Use
  Company Number: CH-ASTRAZENECA-2007PK01076

PATIENT
  Age: 60 Year
  Sex: Female

DRUGS (8)
  1. SEROQUEL [Suspect]
     Route: 048
     Dates: start: 20060518, end: 20060521
  2. SEROQUEL [Interacting]
     Route: 048
     Dates: start: 20060522, end: 20060528
  3. SEROQUEL [Interacting]
     Route: 048
     Dates: start: 20060529, end: 20060529
  4. SEROQUEL [Interacting]
     Route: 048
     Dates: start: 20060530, end: 20060530
  5. VALPROATE SODIUM [Interacting]
     Route: 048
     Dates: start: 20060516, end: 20060521
  6. VALPROATE SODIUM [Interacting]
     Route: 048
     Dates: start: 20060522, end: 20060528
  7. VALPROATE SODIUM [Interacting]
     Route: 048
     Dates: start: 20060529, end: 20060530
  8. VALPROATE SODIUM [Interacting]
     Route: 048
     Dates: start: 20060531, end: 20070602

REACTIONS (2)
  - DRUG INTERACTION [None]
  - DYSKINESIA [None]
